FAERS Safety Report 7198047-8 (Version None)
Quarter: 2010Q4

REPORT INFORMATION
  Report Type: 
  Country: None (occurrence: None)
  Receive Date: 20101227
  Receipt Date: 20101220
  Transmission Date: 20110411
  Serious: Yes (Death, Other)
  Sender: FDA-Public Use
  Company Number: GB-ROCHE-749814

PATIENT

DRUGS (11)
  1. MYCOPHENOLATE MOFETIL [Suspect]
     Indication: ANTI-NEUTROPHIL CYTOPLASMIC ANTIBODY POSITIVE VASCULITIS
     Dosage: TILL 12 MONTHS
     Route: 065
  2. MYCOPHENOLATE MOFETIL [Suspect]
     Dosage: 12 TO 18 MONTHS
     Route: 065
  3. MYCOPHENOLATE MOFETIL [Suspect]
     Dosage: 18 TO 42 MONTHS
     Route: 065
  4. CYCLOPHOSPHAMIDE [Suspect]
     Indication: ANTI-NEUTROPHIL CYTOPLASMIC ANTIBODY POSITIVE VASCULITIS
     Dosage: DAILY ORAL OR INTERMITTENT INTRAVENOUS DOSES FOR A MAXIMUM OF 6 MONTHS
     Route: 050
  5. PREDNISOLONE [Suspect]
     Indication: ANTI-NEUTROPHIL CYTOPLASMIC ANTIBODY POSITIVE VASCULITIS
     Dosage: 1 ST WEEK.  MAXIMUM 80 MG
     Route: 048
  6. PREDNISOLONE [Suspect]
     Dosage: SECOND WEEK
     Route: 048
  7. PREDNISOLONE [Suspect]
     Dosage: 3 TO 4 WEEK
     Route: 048
  8. PREDNISOLONE [Suspect]
     Dosage: 5-7 WEEKS
     Route: 048
  9. PREDNISOLONE [Suspect]
     Dosage: 8-10 WEEKS
     Route: 048
  10. PREDNISOLONE [Suspect]
     Dosage: 11 TO 13 WEEKS
     Route: 048
  11. PREDNISOLONE [Suspect]
     Dosage: START OF THE REMISSION: TAPERED TO 5 MG/DAY AFTER 12 MONTHS.  WITHDRAWN AFTER 24 MONTHS
     Route: 048

REACTIONS (10)
  - ABDOMINAL PAIN [None]
  - ASTHENIA [None]
  - CARDIOVASCULAR DISORDER [None]
  - DIARRHOEA [None]
  - FUNGAL SEPSIS [None]
  - GASTROINTESTINAL DISORDER [None]
  - INFECTION [None]
  - LEUKOPENIA [None]
  - OEDEMA [None]
  - SKIN CANCER [None]
